FAERS Safety Report 20041040 (Version 3)
Quarter: 2022Q1

REPORT INFORMATION
  Report Type: Spontaneous
  Country: DE (occurrence: DE)
  Receive Date: 20211107
  Receipt Date: 20220216
  Transmission Date: 20220423
  Serious: Yes (Other)
  Sender: FDA-Public Use
  Company Number: DE-BoehringerIngelheim-2021-BI-135866

PATIENT
  Age: 69 Year
  Sex: Female

DRUGS (4)
  1. NINTEDANIB [Suspect]
     Active Substance: NINTEDANIB
     Indication: Adenocarcinoma
     Dates: start: 20190705, end: 20190904
  2. NINTEDANIB [Suspect]
     Active Substance: NINTEDANIB
     Dates: start: 20190906, end: 20210204
  3. DOCETAXEL [Suspect]
     Active Substance: DOCETAXEL
     Indication: Adenocarcinoma
     Dosage: 6 CYCLES DOCETAXEL 75 MG/M2
     Dates: start: 20190704, end: 20191017
  4. DOCETAXEL [Suspect]
     Active Substance: DOCETAXEL
     Dates: start: 20210204, end: 20210225

REACTIONS (5)
  - Metastases to liver [Unknown]
  - Metastases to lymph nodes [Unknown]
  - Metastases to lung [Unknown]
  - Nausea [Unknown]
  - Diarrhoea [Unknown]

NARRATIVE: CASE EVENT DATE: 20210204
